FAERS Safety Report 10478474 (Version 1)
Quarter: 2014Q3

REPORT INFORMATION
  Report Type: Spontaneous
  Country: US (occurrence: None)
  Receive Date: 20140925
  Receipt Date: 20140925
  Transmission Date: 20150326
  Serious: No
  Sender: FDA-Public Use
  Company Number: None

PATIENT
  Age: 32 Year
  Sex: Female
  Weight: 90.72 kg

DRUGS (1)
  1. MICONAZOLE 1 [Suspect]
     Active Substance: MICONAZOLE NITRATE
     Indication: VULVOVAGINAL MYCOTIC INFECTION
     Dosage: 1 SOFTGEL 1 DAY VAGINAL
     Route: 067
     Dates: start: 20140923, end: 20140923

REACTIONS (4)
  - Vulvovaginal swelling [None]
  - Vulvovaginal burning sensation [None]
  - Abdominal pain [None]
  - Vulvovaginal pain [None]

NARRATIVE: CASE EVENT DATE: 20140923
